FAERS Safety Report 7198278-7 (Version None)
Quarter: 2010Q4

REPORT INFORMATION
  Report Type: 
  Country: None (occurrence: None)
  Receive Date: 20101227
  Receipt Date: 20101214
  Transmission Date: 20110411
  Serious: Yes (Life-Threatening)
  Sender: FDA-Public Use
  Company Number: PHHY2010US85138

PATIENT
  Sex: Female

DRUGS (1)
  1. AFINITOR [Suspect]
     Indication: GASTRIC CANCER
     Dosage: 10 MG, QD
     Route: 048
     Dates: start: 20101123, end: 20101214

REACTIONS (3)
  - COMA [None]
  - GASTRIC CANCER [None]
  - MALIGNANT NEOPLASM PROGRESSION [None]
